FAERS Safety Report 8382797-1 (Version None)
Quarter: 2012Q2

REPORT INFORMATION
  Report Type: 
  Country: None (occurrence: None)
  Receive Date: 20120524
  Receipt Date: 20120515
  Transmission Date: 20120825
  Serious: Yes (Life-Threatening, Hospitalization)
  Sender: FDA-Public Use
  Company Number: SI-SANOFI-AVENTIS-2012SA028948

PATIENT
  Age: 59 Year
  Sex: Female

DRUGS (14)
  1. MEDROL [Concomitant]
     Dosage: INCREASED
     Route: 048
     Dates: start: 20110101
  2. MAXIPIME [Concomitant]
     Dosage: DOSE: 1
     Route: 042
     Dates: start: 20120308
  3. MEDROL [Concomitant]
     Dosage: DOSE: 32
     Route: 048
  4. ASCORBIC ACID/CALCIUM [Concomitant]
     Route: 048
  5. MICONAZOLE [Concomitant]
  6. RIFAMPIN AND ISONIAZID [Suspect]
     Indication: TUBERCULOSIS
     Dosage: ONE TBL.= 150MG OF ISONIAZIDE AND 300 MG OF RIFMAPICIN
     Route: 048
     Dates: start: 20120306, end: 20120308
  7. RIFAMPIN AND ISONIAZID [Suspect]
     Route: 048
     Dates: start: 20120314, end: 20120314
  8. FRAXIPARIN [Concomitant]
     Dosage: 0,4 ML /24 UR
     Route: 058
  9. BERODUAL [Concomitant]
     Dosage: INH 2 ML 4X PER DAY
  10. ACETAMINOPHEN [Concomitant]
     Dosage: DOSE: 500 MG
  11. PANTOPRAZOLE [Concomitant]
     Dosage: DOSE: 20
  12. CYANOCOBALAMIN/FOLIC ACID/PYRIDOXINE [Concomitant]
     Dosage: 2 TBL. /3X PER DAY
     Route: 048
  13. POTASSIUM CHLORIDE [Concomitant]
     Route: 048
  14. ALPHA D3 [Concomitant]

REACTIONS (6)
  - HYPERCAPNIA [None]
  - BLOOD BILIRUBIN INCREASED [None]
  - ASPARTATE AMINOTRANSFERASE INCREASED [None]
  - TRANSAMINASES INCREASED [None]
  - PYREXIA [None]
  - ALANINE AMINOTRANSFERASE INCREASED [None]
